FAERS Safety Report 24350580 (Version 1)
Quarter: 2024Q3

REPORT INFORMATION
  Report Type: Report from Study
  Country: US (occurrence: US)
  Receive Date: 20240923
  Receipt Date: 20240923
  Transmission Date: 20241017
  Serious: No
  Sender: ROCHE
  Company Number: US-ROCHE-3517727

PATIENT
  Age: 82 Year
  Sex: Female

DRUGS (4)
  1. HERCEPTIN [Suspect]
     Active Substance: TRASTUZUMAB
     Indication: Uterine cancer
     Route: 042
  2. TAXOTERE [Concomitant]
     Active Substance: DOCETAXEL
  3. ALOXI [Concomitant]
     Active Substance: PALONOSETRON HYDROCHLORIDE
  4. UDENYCA [Concomitant]
     Active Substance: PEGFILGRASTIM-CBQV

REACTIONS (2)
  - Off label use [Unknown]
  - No adverse event [Unknown]
